FAERS Safety Report 26044330 (Version 1)
Quarter: 2025Q4

REPORT INFORMATION
  Report Type: Spontaneous
  Country: CN (occurrence: CN)
  Receive Date: 20251114
  Receipt Date: 20251114
  Transmission Date: 20260117
  Serious: Yes (Other)
  Sender: MELINTA THERAPEUTICS
  Company Number: CN-ASTRAZENECA-202511CHN000185CN

PATIENT

DRUGS (1)
  1. METOPROLOL SUCCINATE [Suspect]
     Active Substance: METOPROLOL SUCCINATE
     Dosage: 1 DOSAGE FORM, QD
     Route: 048
     Dates: start: 20250820, end: 20251023

REACTIONS (1)
  - Atrioventricular block second degree [Recovering/Resolving]

NARRATIVE: CASE EVENT DATE: 20251023
